FAERS Safety Report 19995157 (Version 1)
Quarter: 2021Q4

REPORT INFORMATION
  Report Type: Spontaneous
  Country: US (occurrence: US)
  Receive Date: 20211026
  Receipt Date: 20211026
  Transmission Date: 20220303
  Serious: Yes (Other)
  Sender: FDA-Public Use
  Company Number: US-GSKCCFUS-CASE-01198193_AE-70105

PATIENT
  Age: 58 Year
  Sex: Female

DRUGS (1)
  1. BENLYSTA [Suspect]
     Active Substance: BELIMUMAB
     Indication: Systemic lupus erythematosus
     Dosage: UNK
     Dates: start: 20211014

REACTIONS (10)
  - Injection site haemorrhage [Recovered/Resolved]
  - Hypoaesthesia [Recovered/Resolved]
  - Injection site pain [Unknown]
  - Pain in extremity [Recovered/Resolved]
  - Cough [Not Recovered/Not Resolved]
  - Periorbital swelling [Unknown]
  - Ocular hyperaemia [Not Recovered/Not Resolved]
  - Drainage [Not Recovered/Not Resolved]
  - Eye swelling [Not Recovered/Not Resolved]
  - Ear discomfort [Not Recovered/Not Resolved]

NARRATIVE: CASE EVENT DATE: 20211017
